FAERS Safety Report 6051205-8 (Version None)
Quarter: 2009Q1

REPORT INFORMATION
  Report Type: 
  Country: None (occurrence: None)
  Receive Date: 20090121
  Receipt Date: 20090105
  Transmission Date: 20090719
  Serious: Yes (Death, Hospitalization)
  Sender: FDA-Public Use
  Company Number: 2008002978

PATIENT
  Age: 71 Year
  Sex: Male

DRUGS (10)
  1. ERLOTINIB (ERLOTINIB) (TABLET) (ERLOTINIB) [Suspect]
     Indication: NON-SMALL CELL LUNG CANCER
     Dosage: (150 MG, QD), ORAL, (150 MG, QD), ORAL
     Route: 048
     Dates: start: 20080304, end: 20080529
  2. ERLOTINIB (ERLOTINIB) (TABLET) (ERLOTINIB) [Suspect]
     Indication: NON-SMALL CELL LUNG CANCER
     Dosage: (150 MG, QD), ORAL, (150 MG, QD), ORAL
     Route: 048
     Dates: start: 20080611
  3. PREDNISONA [Concomitant]
  4. SALBUTAMOL (SALBUTAMOL) [Concomitant]
  5. OMEPRAZOLE [Concomitant]
  6. IPATROPIO BROMURO [Concomitant]
  7. FLUTICASONA [Concomitant]
  8. NOVOMIX 30 [Concomitant]
  9. SERETIDE (SERETIDE) [Concomitant]
  10. SEGURIL (FUROSEMIDE) [Concomitant]

REACTIONS (6)
  - BRONCHOSPASM [None]
  - DYSPNOEA [None]
  - HERPES VIRUS INFECTION [None]
  - HYPERGLYCAEMIA [None]
  - RADIATION PNEUMONITIS [None]
  - STAPHYLOCOCCAL INFECTION [None]
